FAERS Safety Report 4773536-1 (Version None)
Quarter: 2005Q3

REPORT INFORMATION
  Report Type: 
  Country: None (occurrence: None)
  Receive Date: 20050920
  Receipt Date: 20040913
  Transmission Date: 20060218
  Serious: No
  Sender: FDA-Public Use
  Company Number: US-BRISTOL-MYERS SQUIBB COMPANY-12700407

PATIENT
  Age: 55 Year
  Sex: Female
  Weight: 104 kg

DRUGS (4)
  1. BUSPAR [Suspect]
     Indication: DEPRESSION
     Route: 048
     Dates: start: 20020101, end: 20040101
  2. BUSPAR [Suspect]
     Indication: ANXIETY
     Route: 048
     Dates: start: 20020101, end: 20040101
  3. RISPERDAL [Concomitant]
  4. ANTIDEPRESSANT NOS [Concomitant]

REACTIONS (4)
  - AGITATION [None]
  - DIZZINESS [None]
  - MEMORY IMPAIRMENT [None]
  - NAUSEA [None]
